FAERS Safety Report 13679410 (Version 1)
Quarter: 2017Q2

REPORT INFORMATION
  Report Type: Report from Study
  Country: US (occurrence: US)
  Receive Date: 20170622
  Receipt Date: 20170622
  Transmission Date: 20170830
  Serious: Yes (Other)
  Sender: FDA-Public Use
  Company Number: US-BAYER-2017-114841

PATIENT
  Sex: Female

DRUGS (2)
  1. GADOLINIUM CONTRAST AGENTS [Suspect]
     Active Substance: GADOLINIUM
     Indication: NUCLEAR MAGNETIC RESONANCE IMAGING BRAIN
  2. GADOLINIUM CONTRAST AGENTS [Suspect]
     Active Substance: GADOLINIUM
     Indication: NUCLEAR MAGNETIC RESONANCE IMAGING
     Dosage: UNK UNK, ONCE

REACTIONS (5)
  - Muscle spasms [None]
  - Hypertension [None]
  - Gadolinium deposition disease [None]
  - Skin hypertrophy [None]
  - Pain [None]
